FAERS Safety Report 5147727-4 (Version None)
Quarter: 2006Q4

REPORT INFORMATION
  Report Type: 
  Country: None (occurrence: None)
  Receive Date: 20061110
  Receipt Date: 20061027
  Transmission Date: 20070319
  Serious: Yes (Other)
  Sender: FDA-Public Use
  Company Number: PHBS2006DK17299

PATIENT

DRUGS (2)
  1. OXCARBAZEPINE [Suspect]
     Dosage: MATERNAL DOSE: 1200 MG DURING 2ND TRIMESTER
     Route: 064
  2. LAMOTRIGINE [Concomitant]
     Route: 064

REACTIONS (4)
  - CAESAREAN SECTION [None]
  - DRUG EXPOSURE DURING PREGNANCY [None]
  - MATERNAL CONDITION AFFECTING FOETUS [None]
  - PREMATURE BABY [None]
